FAERS Safety Report 26125139 (Version 2)
Quarter: 2025Q4

REPORT INFORMATION
  Report Type: Spontaneous
  Country: US (occurrence: US)
  Receive Date: 20251205
  Receipt Date: 20251210
  Transmission Date: 20260118
  Serious: Yes (Death, Hospitalization, Other)
  Sender: ABBVIE
  Company Number: US-ABBVIE-6577609

PATIENT
  Age: 69 Year
  Sex: Male

DRUGS (1)
  1. VYALEV [Suspect]
     Active Substance: FOSCARBIDOPA\FOSLEVODOPA
     Indication: Parkinson^s disease
     Dosage: 24-HOUR INFUSION
     Route: 058

REACTIONS (4)
  - Infusion site infection [Fatal]
  - Mania [Unknown]
  - Parkinson^s disease [Fatal]
  - Infusion site abscess [Unknown]

NARRATIVE: CASE EVENT DATE: 20250709
